FAERS Safety Report 6385490-X (Version None)
Quarter: 2009Q4

REPORT INFORMATION
  Report Type: 
  Country: None (occurrence: None)
  Receive Date: 20091002
  Receipt Date: 20080923
  Transmission Date: 20100525
  Serious: No
  Sender: FDA-Public Use
  Company Number: US-ASTRAZENECA-2008UW19940

PATIENT
  Age: 73 Year
  Sex: Female
  Weight: 61.2 kg

DRUGS (6)
  1. ARIMIDEX [Suspect]
     Route: 048
     Dates: start: 20080914
  2. ATENOLOL [Concomitant]
  3. ZOCOR [Concomitant]
  4. ZETIA [Concomitant]
  5. SYNTHROID [Concomitant]
  6. RECLAST [Concomitant]

REACTIONS (3)
  - BURNING SENSATION MUCOSAL [None]
  - ORAL DISCOMFORT [None]
  - THROAT IRRITATION [None]
